FAERS Safety Report 11262969 (Version 3)
Quarter: 2019Q2

REPORT INFORMATION
  Report Type: Report from Study
  Country: US (occurrence: US)
  Receive Date: 20150710
  Receipt Date: 20190617
  Transmission Date: 20190711
  Serious: Yes (Other)
  Sender: FDA-Public Use
  Company Number: US-CELGENEUS-USA-2015066922

PATIENT
  Age: 66 Year
  Sex: Male
  Weight: 103.06 kg

DRUGS (3)
  1. VELCADE [Suspect]
     Active Substance: BORTEZOMIB
     Indication: PLASMA CELL MYELOMA
     Dosage: 3 MILLIGRAM
     Route: 058
     Dates: start: 20150223
  2. REVLIMID [Suspect]
     Active Substance: LENALIDOMIDE
     Indication: PLASMA CELL MYELOMA
     Dosage: 25 MILLIGRAM
     Route: 048
     Dates: start: 20150223, end: 20160711
  3. DEXAMETHASONE ORAL [Suspect]
     Active Substance: DEXAMETHASONE
     Indication: PLASMA CELL MYELOMA
     Dosage: 8 MILLIGRAM
     Route: 048
     Dates: start: 20150223

REACTIONS (5)
  - Pneumonia [Unknown]
  - Respiratory failure [Recovered/Resolved]
  - Acute kidney injury [Unknown]
  - Lung infiltration [Unknown]
  - Influenza [Unknown]

NARRATIVE: CASE EVENT DATE: 20150406
